FAERS Safety Report 6441952-8 (Version None)
Quarter: 2009Q4

REPORT INFORMATION
  Report Type: 
  Country: None (occurrence: None)
  Receive Date: 20091112
  Receipt Date: 20091102
  Transmission Date: 20100525
  Serious: Yes (Hospitalization)
  Sender: FDA-Public Use
  Company Number: ADR46632009

PATIENT
  Age: 66 Year
  Sex: Male

DRUGS (6)
  1. SIMVASTATIN [Suspect]
     Indication: HYPERCHOLESTEROLAEMIA
     Dosage: ORAL
     Route: 048
  2. CYPROTERONE ACETATE [Concomitant]
  3. ALLOPURINOL [Concomitant]
  4. AMLODIPINE [Concomitant]
  5. CANDESARTAN CILEXETIL [Concomitant]
  6. OMEPRAZOLE [Concomitant]

REACTIONS (2)
  - DRUG INTERACTION [None]
  - RHABDOMYOLYSIS [None]
